FAERS Safety Report 6063399-9 (Version None)
Quarter: 2009Q1

REPORT INFORMATION
  Report Type: 
  Country: None (occurrence: None)
  Receive Date: 20090203
  Receipt Date: 20090122
  Transmission Date: 20090719
  Serious: Yes (Other)
  Sender: FDA-Public Use
  Company Number: PHHO2009US01375

PATIENT
  Sex: Female
  Weight: 55.8 kg

DRUGS (3)
  1. ZOLEDRONATE T29581+SOLINF [Suspect]
     Indication: BREAST CANCER
     Dosage: 4 MG, MONTHLY
     Route: 042
     Dates: start: 20080905
  2. CALCIUM [Concomitant]
  3. VITAMIN D [Concomitant]

REACTIONS (4)
  - EYE IRRITATION [None]
  - EYE LASER SURGERY [None]
  - RETINAL TEAR [None]
  - VISION BLURRED [None]
